FAERS Safety Report 17443773 (Version 2)
Quarter: 2020Q4

REPORT INFORMATION
  Report Type: Report from Study
  Country: None (occurrence: CO)
  Receive Date: 20200221
  Receipt Date: 20201207
  Transmission Date: 20210113
  Serious: Yes (Disabling, Other)
  Sender: FDA-Public Use
  Company Number: CO-ABBVIE-20K-036-3287725-00

PATIENT
  Sex: Female
  Weight: 59 kg

DRUGS (1)
  1. HUMIRA [Suspect]
     Active Substance: ADALIMUMAB
     Indication: HIDRADENITIS
     Route: 058
     Dates: start: 20180730

REACTIONS (4)
  - Adverse drug reaction [Unknown]
  - Postoperative wound infection [Recovering/Resolving]
  - Fistula [Recovering/Resolving]
  - Procedural failure [Unknown]

NARRATIVE: CASE EVENT DATE: 2019
